FAERS Safety Report 6160256-4 (Version None)
Quarter: 2009Q2

REPORT INFORMATION
  Report Type: 
  Country: None (occurrence: None)
  Receive Date: 20090420
  Receipt Date: 20090413
  Transmission Date: 20091009
  Serious: Yes (Other)
  Sender: FDA-Public Use
  Company Number: B0570311A

PATIENT
  Sex: Male
  Weight: 52 kg

DRUGS (3)
  1. SALBUTAMOL [Suspect]
     Indication: ASTHMA
     Route: 055
     Dates: start: 20050603
  2. BUDESONIDE [Suspect]
     Indication: ASTHMA
     Route: 065
     Dates: start: 20050620
  3. MONTELUKAST [Concomitant]
     Dosage: 10MG PER DAY
     Route: 065
     Dates: start: 20070327

REACTIONS (2)
  - ENAMEL ANOMALY [None]
  - LOOSE TOOTH [None]
